FAERS Safety Report 5792348-3 (Version None)
Quarter: 2008Q2

REPORT INFORMATION
  Report Type: 
  Country: None (occurrence: None)
  Receive Date: 20080625
  Receipt Date: 20080506
  Transmission Date: 20081010
  Serious: Yes (Hospitalization, Other)
  Sender: FDA-Public Use
  Company Number: US-WYE-H03944308

PATIENT
  Age: 67 Year
  Sex: Female
  Weight: 69 kg

DRUGS (5)
  1. TORISEL [Suspect]
     Indication: RENAL CELL CARCINOMA
     Dosage: 25 MG 1X PER 1 WK, INTRAVENOUS
     Route: 042
     Dates: start: 20080505, end: 20080505
  2. DARVOCET-N (DEXTROPROPOXYPHENE/PARACETAMOL) [Concomitant]
  3. LEXAPRO [Concomitant]
  4. METOPROLOL TARTRATE [Concomitant]
  5. MICARDIS HCT [Concomitant]

REACTIONS (1)
  - ANAPHYLACTIC REACTION [None]
